FAERS Safety Report 6736743-4 (Version None)
Quarter: 2010Q2

REPORT INFORMATION
  Report Type: 
  Country: None (occurrence: None)
  Receive Date: 20100521
  Receipt Date: 20100518
  Transmission Date: 20101027
  Serious: Yes (Death, Hospitalization, Other)
  Sender: FDA-Public Use
  Company Number: PHHY2009IE37739

PATIENT
  Sex: Male

DRUGS (7)
  1. TASIGNA [Suspect]
     Indication: ACUTE LYMPHOCYTIC LEUKAEMIA
     Dosage: 400 MG, BID
     Route: 048
     Dates: start: 20090501, end: 20091119
  2. TASIGNA [Suspect]
     Dosage: UNK
     Dates: end: 20100121
  3. NEXIUM [Concomitant]
     Indication: GASTROINTESTINAL DISORDER
     Dosage: 40 MG, UNK
     Route: 048
  4. CIPRAMIL [Concomitant]
     Indication: ANTIDEPRESSANT THERAPY
     Dosage: 20 MG, UNK
     Route: 048
  5. CRESTOR [Concomitant]
     Indication: BLOOD CHOLESTEROL DECREASED
     Dosage: 5 MG, UNK
     Route: 048
  6. ASPIRIN [Concomitant]
     Indication: ANTIPLATELET THERAPY
     Dosage: 75 MG, UNK
     Route: 048
  7. ISTIN [Concomitant]
     Indication: HYPOTENSION
     Dosage: 10 MG, UNK
     Route: 048

REACTIONS (22)
  - ABDOMINAL PAIN [None]
  - ABDOMINAL TENDERNESS [None]
  - ACUTE RESPIRATORY DISTRESS SYNDROME [None]
  - CANDIDIASIS [None]
  - CHEST PAIN [None]
  - COLOSTOMY [None]
  - CONSTIPATION [None]
  - CRANIAL NERVE PARALYSIS [None]
  - DECREASED APPETITE [None]
  - GASTROINTESTINAL NECROSIS [None]
  - HEADACHE [None]
  - HYPOTENSION [None]
  - ILEAL PERFORATION [None]
  - LEUKAEMIA RECURRENT [None]
  - LEUKAEMIC INFILTRATION BRAIN [None]
  - LOWER RESPIRATORY TRACT INFECTION [None]
  - PLEURAL EFFUSION [None]
  - RECTAL PERFORATION [None]
  - RENAL FAILURE ACUTE [None]
  - RESPIRATORY FAILURE [None]
  - SEPSIS [None]
  - WEIGHT DECREASED [None]
